FAERS Safety Report 9742678 (Version 1)
Quarter: 2013Q4

REPORT INFORMATION
  Report Type: Spontaneous
  Country: US (occurrence: US)
  Receive Date: 20131210
  Receipt Date: 20131210
  Transmission Date: 20140711
  Serious: No
  Sender: FDA-Public Use
  Company Number: US-GILEAD-2009-0025297

PATIENT
  Sex: Female
  Weight: 89.36 kg

DRUGS (14)
  1. LETAIRIS [Suspect]
     Indication: PULMONARY ARTERIAL HYPERTENSION
     Route: 048
     Dates: start: 20090926
  2. LASIX [Concomitant]
  3. DIOVAN [Concomitant]
  4. METOPROLOL [Concomitant]
  5. LIPITOR [Concomitant]
  6. REMICADE [Concomitant]
  7. SINGULAIR [Concomitant]
  8. AMBIEN [Concomitant]
  9. PREDNISONE [Concomitant]
  10. GABAPENTIN [Concomitant]
  11. MS CONTIN [Concomitant]
  12. LORTAB [Concomitant]
  13. OMEPRAZOLE [Concomitant]
  14. MULTIVITAMIN [Concomitant]

REACTIONS (2)
  - Dizziness [Unknown]
  - Sinus disorder [Unknown]
